FAERS Safety Report 4839776-8 (Version None)
Quarter: 2005Q4

REPORT INFORMATION
  Report Type: 
  Country: None (occurrence: None)
  Receive Date: 20051129
  Receipt Date: 20050826
  Transmission Date: 20060501
  Serious: No
  Sender: FDA-Public Use
  Company Number: US-GLAXOSMITHKLINE-A0571996A

PATIENT
  Age: 43 Year
  Sex: Female

DRUGS (4)
  1. WELLBUTRIN [Suspect]
     Indication: DEPRESSION
     Dosage: 150MG PER DAY
     Route: 048
  2. EFFEXOR [Concomitant]
  3. LEXAPRO [Concomitant]
  4. LAMICTAL [Concomitant]

REACTIONS (1)
  - DRUG ADMINISTRATION ERROR [None]
